FAERS Safety Report 9794324 (Version 2)
Quarter: 2014Q1

REPORT INFORMATION
  Report Type: Report from Study
  Country: US (occurrence: US)
  Receive Date: 20140102
  Receipt Date: 20140116
  Transmission Date: 20141002
  Serious: Yes (Hospitalization)
  Sender: FDA-Public Use
  Company Number: US-ACTELION-A-US2013-92967

PATIENT
  Age: 80 Year
  Sex: Male

DRUGS (10)
  1. MACITENTAN [Suspect]
     Indication: PULMONARY ARTERIAL HYPERTENSION
     Dosage: 10 MG, QD
     Route: 048
     Dates: start: 20131202
  2. METFORMIN [Concomitant]
     Dosage: 500 MG, UNK
  3. CARVEDILOL [Concomitant]
     Dosage: 6.25 MG, UNK
  4. DIGOXIN [Concomitant]
     Dosage: 125 MCG, UNK
  5. ADCIRCA [Concomitant]
     Dosage: 20 MG, BID
  6. LANTUS [Concomitant]
     Dosage: 100 U, UNK
  7. GABAPENTIN [Concomitant]
     Dosage: 300 MG, UNK
  8. TEMAZEPAM [Concomitant]
     Dosage: 15 MG, UNK
  9. KLOR-CON [Concomitant]
     Dosage: 10 MEQ, UNK
  10. FUROSEMIDE [Concomitant]
     Dosage: 40 MG, UNK

REACTIONS (1)
  - Pneumonia [Recovered/Resolved]
